FAERS Safety Report 18222831 (Version 1)
Quarter: 2020Q3

REPORT INFORMATION
  Report Type: Spontaneous
  Country: FR (occurrence: FR)
  Receive Date: 20200902
  Receipt Date: 20200902
  Transmission Date: 20201103
  Serious: Yes (Other)
  Sender: FDA-Public Use
  Company Number: NVSC2020FR236545

PATIENT
  Age: 27 Year
  Sex: Male
  Weight: 79 kg

DRUGS (6)
  1. TRAMETINIB [Suspect]
     Active Substance: TRAMETINIB
     Indication: METASTATIC MALIGNANT MELANOMA
     Dosage: 2 MG, QD
     Route: 048
     Dates: start: 20181204
  2. IPILIMUMAB [Suspect]
     Active Substance: IPILIMUMAB
     Indication: METASTATIC MALIGNANT MELANOMA
     Dosage: (C1 18/10/2018 ; C2 13/11/2018 ; C3 04/12/2018)
     Route: 042
     Dates: start: 20181018, end: 20181204
  3. CORTANCYL [Concomitant]
     Active Substance: PREDNISONE
     Indication: METASTATIC MALIGNANT MELANOMA
     Dosage: UNK
     Route: 048
     Dates: start: 20190429
  4. PLAQUENIL [Suspect]
     Active Substance: HYDROXYCHLOROQUINE SULFATE
     Indication: METASTATIC MALIGNANT MELANOMA
     Dosage: 1200 MG, QD
     Route: 048
     Dates: start: 20190429, end: 20200506
  5. NIVOLUMAB [Suspect]
     Active Substance: NIVOLUMAB
     Indication: METASTATIC MALIGNANT MELANOMA
     Dosage: (C1 18/10/2018 ; C2 13/11/2018 ; C3 04/12/2018) ? (C1 01/03/2019 ; C2 01/04/2019) ? (C1 06/05/2020 ;
     Route: 042
     Dates: start: 20181018
  6. DABRAFENIB [Suspect]
     Active Substance: DABRAFENIB
     Indication: METASTATIC MALIGNANT MELANOMA
     Dosage: 300 MG, QD
     Route: 048
     Dates: start: 20181204

REACTIONS (1)
  - Left ventricular dysfunction [Recovering/Resolving]

NARRATIVE: CASE EVENT DATE: 20190613
